FAERS Safety Report 6472198-5 (Version None)
Quarter: 2009Q4

REPORT INFORMATION
  Report Type: 
  Country: None (occurrence: None)
  Receive Date: 20091203
  Receipt Date: 20081203
  Transmission Date: 20100525
  Serious: No
  Sender: FDA-Public Use
  Company Number: US-AMGEN-KDL322078

PATIENT
  Sex: Female

DRUGS (1)
  1. ENBREL [Suspect]
     Indication: RHEUMATOID ARTHRITIS
     Dates: start: 20080410

REACTIONS (9)
  - ARTHRALGIA [None]
  - EXOSTOSIS [None]
  - JOINT SWELLING [None]
  - OEDEMA PERIPHERAL [None]
  - PAIN IN EXTREMITY [None]
  - PHYSICAL BREAST EXAMINATION ABNORMAL [None]
  - POSTNASAL DRIP [None]
  - SINUSITIS [None]
  - SKIN LESION [None]
